FAERS Safety Report 6332351-8 (Version None)
Quarter: 2009Q3

REPORT INFORMATION
  Report Type: 
  Country: None (occurrence: None)
  Receive Date: 20090828
  Receipt Date: 20090819
  Transmission Date: 20100115
  Serious: Yes (Hospitalization)
  Sender: FDA-Public Use
  Company Number: US-JNJFOC-20090803980

PATIENT
  Sex: Female
  Weight: 75.75 kg

DRUGS (18)
  1. DOXORUBICIN HCL [Suspect]
     Indication: MULTIPLE MYELOMA
     Dosage: 3 CYCLES
     Route: 042
  2. VELCADE [Suspect]
     Indication: MULTIPLE MYELOMA
     Route: 065
  3. DEXAMETHASONE [Suspect]
     Indication: MULTIPLE MYELOMA
     Route: 065
  4. REVLIMID [Suspect]
     Indication: MULTIPLE MYELOMA
     Route: 065
  5. ACYCLOVIR [Concomitant]
     Route: 065
  6. ZOMIG [Concomitant]
     Route: 065
  7. CALCIUM [Concomitant]
     Route: 065
  8. CHANTIX [Concomitant]
     Route: 065
  9. VITAMIN D [Concomitant]
     Route: 065
  10. CAPSAICIN [Concomitant]
     Route: 065
  11. CHLORHEXIDINE GLUCONATE [Concomitant]
     Route: 065
  12. ASPIRIN [Concomitant]
     Route: 065
  13. FOLIC ACID [Concomitant]
     Route: 065
  14. GABAPENTIN [Concomitant]
     Route: 065
  15. LIDOCAINE [Concomitant]
     Route: 065
  16. OMEPRAZOLE [Concomitant]
     Route: 065
  17. OXYCONTIN [Concomitant]
     Route: 065
  18. ZOFRAN [Concomitant]
     Route: 065

REACTIONS (2)
  - PALMAR-PLANTAR ERYTHRODYSAESTHESIA SYNDROME [None]
  - STAPHYLOCOCCAL SKIN INFECTION [None]
